FAERS Safety Report 7478525-4 (Version None)
Quarter: 2011Q2

REPORT INFORMATION
  Report Type: 
  Country: None (occurrence: None)
  Receive Date: 20110513
  Receipt Date: 20110512
  Transmission Date: 20111010
  Serious: Yes (Hospitalization)
  Sender: FDA-Public Use
  Company Number: US-TEVA-276132USA

PATIENT
  Sex: Male
  Weight: 69.916 kg

DRUGS (24)
  1. PROMETHAZINE [Concomitant]
     Indication: NAUSEA
     Route: 048
  2. MINOCYCLINE HCL [Concomitant]
     Indication: RASH
     Route: 048
     Dates: start: 20110311
  3. MELPHALAN HYDROCHLORIDE [Concomitant]
     Indication: FATIGUE
     Dosage: 20 MILLIGRAM;
     Route: 048
     Dates: start: 20110330
  4. ERBITUX [Suspect]
     Indication: HEAD AND NECK CANCER
     Dosage: LOADING DOSE
     Route: 042
     Dates: start: 20110124, end: 20110330
  5. GLUCOSE [Concomitant]
     Indication: FATIGUE
     Route: 042
     Dates: start: 20110302
  6. GRANISETRON HCL [Concomitant]
     Indication: NAUSEA
  7. SODIUM CHLORIDE [Concomitant]
     Indication: ASTHENIA
  8. TEMAZ [Concomitant]
     Indication: PRODUCT USED FOR UNKNOWN INDICATION
  9. FLUOROURACIL [Suspect]
     Indication: HEAD AND NECK CANCER
     Route: 042
     Dates: start: 20110124, end: 20110323
  10. DOLASETRON MESYLATE [Concomitant]
     Indication: NAUSEA
     Route: 048
     Dates: start: 20110124
  11. POTASSIUM CHLORIDE [Concomitant]
     Indication: HYPOKALAEMIA
     Route: 048
     Dates: start: 20110131
  12. MAGNESIUM OXIDE [Concomitant]
     Indication: HYPOMAGNESAEMIA
     Dosage: 1200 MILLIGRAM;
     Route: 048
     Dates: start: 20110302
  13. GRANISETRON HCL [Concomitant]
     Indication: FATIGUE
     Dates: start: 20110302
  14. POTASSIUM CHLORIDE [Concomitant]
     Indication: PRODUCT USED FOR UNKNOWN INDICATION
  15. CISPLATIN [Suspect]
     Indication: HEAD AND NECK CANCER
     Route: 042
     Dates: start: 20110124, end: 20110323
  16. MINOCYCLINE HCL [Concomitant]
     Indication: DERMATITIS ACNEIFORM
     Route: 048
     Dates: start: 20110214
  17. MACROGOL [Concomitant]
     Indication: PRODUCT USED FOR UNKNOWN INDICATION
  18. OMEPRAZOLE [Concomitant]
     Indication: PRODUCT USED FOR UNKNOWN INDICATION
  19. LANSOPRAZOLE [Concomitant]
  20. CLINDAMYCIN [Concomitant]
     Indication: DERMATITIS ACNEIFORM
     Route: 061
     Dates: start: 20110207
  21. LORAZEPAM [Concomitant]
  22. MACROGOL [Concomitant]
     Indication: CONSTIPATION
     Route: 048
     Dates: start: 20110221
  23. GLUCOSE [Concomitant]
     Indication: NAUSEA
  24. SODIUM CHLORIDE [Concomitant]
     Indication: FATIGUE
     Route: 042
     Dates: start: 20110302

REACTIONS (2)
  - HYPOTENSION [None]
  - GASTROINTESTINAL HAEMORRHAGE [None]
